FAERS Safety Report 7792435-4 (Version None)
Quarter: 2011Q4

REPORT INFORMATION
  Report Type: 
  Country: None (occurrence: None)
  Receive Date: 20111003
  Receipt Date: 20110928
  Transmission Date: 20120403
  Serious: Yes (Hospitalization)
  Sender: FDA-Public Use
  Company Number: US-ABBOTT-11P-163-0840303-00

PATIENT
  Sex: Female
  Weight: 78.088 kg

DRUGS (11)
  1. IBUPROFEN (ADVIL) [Concomitant]
     Indication: OSTEOARTHRITIS
     Route: 048
  2. ASPIRIN [Concomitant]
     Indication: PROPHYLAXIS
     Route: 048
  3. UNKNOWN DIABETIC MEDICATION [Concomitant]
     Indication: DIABETES MELLITUS
     Route: 048
     Dates: start: 20060101
  4. NITROGLYCERIN [Concomitant]
     Indication: CHEST PAIN
  5. OMEPRAZOLE [Concomitant]
     Indication: GASTROOESOPHAGEAL REFLUX DISEASE
     Route: 050
     Dates: start: 20090101
  6. HUMIRA [Suspect]
     Indication: PSORIASIS
     Route: 058
  7. GLUCOPHAGE [Concomitant]
     Indication: DIABETES MELLITUS
     Route: 048
     Dates: start: 20060101
  8. UNKNOWN INHALERS [Concomitant]
     Indication: ASTHMA
  9. TYLENOL-500 [Concomitant]
     Indication: MIGRAINE
     Route: 048
  10. ANACIN [Concomitant]
     Indication: MIGRAINE
     Route: 048
  11. HUMIRA [Suspect]
     Indication: PSORIASIS
     Route: 058
     Dates: start: 20101101, end: 20110101

REACTIONS (14)
  - ARTHRALGIA [None]
  - PRURITUS [None]
  - DEPRESSION [None]
  - CONFUSIONAL STATE [None]
  - DRUG INEFFECTIVE [None]
  - DRUG DOSE OMISSION [None]
  - HEADACHE [None]
  - PSORIASIS [None]
  - DRY SKIN [None]
  - GASTROOESOPHAGEAL REFLUX DISEASE [None]
  - HYPERSENSITIVITY [None]
  - DEATH OF RELATIVE [None]
  - INAPPROPRIATE SCHEDULE OF DRUG ADMINISTRATION [None]
  - ARTHRITIS [None]
